FAERS Safety Report 5204950-8 (Version None)
Quarter: 2007Q1

REPORT INFORMATION
  Report Type: 
  Country: None (occurrence: None)
  Receive Date: 20070110
  Receipt Date: 20060913
  Transmission Date: 20070707
  Serious: No
  Sender: FDA-Public Use
  Company Number: US-BRISTOL-MYERS SQUIBB COMPANY-13508221

PATIENT
  Age: 14 Year
  Sex: Female
  Weight: 41 kg

DRUGS (5)
  1. ABILIFY [Suspect]
     Indication: ATTENTION DEFICIT/HYPERACTIVITY DISORDER
     Dosage: ABILIFY 5MG,1/2TABLET DAILY 31-08-2006.DOSAGE INCREASED TO ABILIFY5MG,1TABLET,ONCE DAILY ON 07-09-06
     Route: 048
     Dates: start: 20060831
  2. ABILIFY [Suspect]
     Indication: IMPULSIVE BEHAVIOUR
     Dosage: ABILIFY 5MG,1/2TABLET DAILY 31-08-2006.DOSAGE INCREASED TO ABILIFY5MG,1TABLET,ONCE DAILY ON 07-09-06
     Route: 048
     Dates: start: 20060831
  3. ADDERALL 10 [Concomitant]
  4. ALLEGRA [Concomitant]
  5. MULTI-VITAMIN [Concomitant]

REACTIONS (1)
  - VISION BLURRED [None]
